FAERS Safety Report 12487890 (Version 2)
Quarter: 2016Q4

REPORT INFORMATION
  Report Type: Spontaneous
  Country: US (occurrence: US)
  Receive Date: 20160622
  Receipt Date: 20161115
  Transmission Date: 20170207
  Serious: No
  Sender: FDA-Public Use
  Company Number: US-LEO PHARMA-242481

PATIENT
  Age: 66 Year
  Sex: Male

DRUGS (1)
  1. PICATO [Suspect]
     Active Substance: INGENOL MEBUTATE
     Indication: PRECANCEROUS SKIN LESION
     Route: 061
     Dates: start: 20160604, end: 20160606

REACTIONS (7)
  - Drug administered at inappropriate site [Unknown]
  - Application site haemorrhage [Recovered/Resolved]
  - Application site scab [Recovered/Resolved]
  - Application site exfoliation [Recovered/Resolved]
  - Application site pustules [Recovered/Resolved]
  - Application site pain [Recovered/Resolved]
  - Application site dryness [Recovered/Resolved]

NARRATIVE: CASE EVENT DATE: 20160604
